FAERS Safety Report 19169743 (Version 1)
Quarter: 2021Q2

REPORT INFORMATION
  Report Type: Spontaneous
  Country: US (occurrence: US)
  Receive Date: 20210422
  Receipt Date: 20210422
  Transmission Date: 20210717
  Serious: No
  Sender: FDA-Public Use
  Company Number: US-ASTELLAS-2020US026829

PATIENT

DRUGS (4)
  1. LEXISCAN [Suspect]
     Active Substance: REGADENOSON
     Indication: PRODUCT USED FOR UNKNOWN INDICATION
     Dosage: UNK PRE?FILLED SYRINGE/NORMAL DOSE, UNKNOWN FREQ.
     Route: 065
     Dates: start: 20200630
  2. LEXISCAN [Suspect]
     Active Substance: REGADENOSON
     Indication: PRODUCT USED FOR UNKNOWN INDICATION
     Dosage: UNK PRE?FILLED SYRINGE/NORMAL DOSE, UNKNOWN FREQ.
     Route: 065
     Dates: start: 20200630
  3. LEXISCAN [Suspect]
     Active Substance: REGADENOSON
     Indication: PRODUCT USED FOR UNKNOWN INDICATION
     Dosage: UNK PRE?FILLED SYRINGE/NORMAL DOSE, UNKNOWN FREQ.
     Route: 065
     Dates: start: 20200630
  4. LEXISCAN [Suspect]
     Active Substance: REGADENOSON
     Indication: PRODUCT USED FOR UNKNOWN INDICATION
     Dosage: UNK PRE?FILLED SYRINGE/NORMAL DOSE, UNKNOWN FREQ.
     Route: 065
     Dates: start: 20200630

REACTIONS (1)
  - Hypotension [Unknown]

NARRATIVE: CASE EVENT DATE: 20200630
